FAERS Safety Report 17275251 (Version 1)
Quarter: 2020Q1

REPORT INFORMATION
  Report Type: Spontaneous
  Country: ES (occurrence: ES)
  Receive Date: 20200116
  Receipt Date: 20200116
  Transmission Date: 20200409
  Serious: Yes (Other)
  Sender: FDA-Public Use
  Company Number: ES-ROCHE-2517930

PATIENT
  Age: 57 Year

DRUGS (3)
  1. VINORELBINE [Suspect]
     Active Substance: VINORELBINE TARTRATE
     Indication: SQUAMOUS CELL BREAST CARCINOMA
     Dosage: UNK
     Route: 065
     Dates: start: 201907
  2. CAPECITABINE. [Suspect]
     Active Substance: CAPECITABINE
     Indication: SQUAMOUS CELL BREAST CARCINOMA
     Dosage: UNK
     Route: 065
     Dates: start: 201905
  3. CAPECITABINE. [Suspect]
     Active Substance: CAPECITABINE
     Dosage: UNK
     Route: 065
     Dates: start: 201907

REACTIONS (6)
  - PIK3CA-activated mutation [Unknown]
  - Metastases to lung [Unknown]
  - Malignant neoplasm progression [Unknown]
  - Squamous cell breast carcinoma [Unknown]
  - Metastases to bone [Unknown]
  - Metaplastic breast carcinoma [Unknown]

NARRATIVE: CASE EVENT DATE: 20190727
